FAERS Safety Report 12399383 (Version 1)
Quarter: 2016Q2

REPORT INFORMATION
  Report Type: Report from Study
  Country: US (occurrence: US)
  Receive Date: 20160524
  Receipt Date: 20160524
  Transmission Date: 20160815
  Serious: Yes (Other)
  Sender: FDA-Public Use
  Company Number: US-JNJFOC-20160521084

PATIENT
  Sex: Female

DRUGS (2)
  1. IMBRUVICA [Suspect]
     Active Substance: IBRUTINIB
     Indication: CHRONIC LYMPHOCYTIC LEUKAEMIA
     Dosage: UNK
     Route: 065
     Dates: start: 20150601
  2. DIOVOL [Concomitant]

REACTIONS (9)
  - Orthosis user [Unknown]
  - Walking aid user [Unknown]
  - Bone pain [Not Recovered/Not Resolved]
  - Dysphagia [Not Recovered/Not Resolved]
  - Osteoarthritis [Unknown]
  - Oropharyngeal pain [Not Recovered/Not Resolved]
  - Immunosuppression [Not Recovered/Not Resolved]
  - Gastrooesophageal reflux disease [Not Recovered/Not Resolved]
  - Impaired healing [Unknown]
